FAERS Safety Report 6718544-6 (Version None)
Quarter: 2010Q2

REPORT INFORMATION
  Report Type: 
  Country: None (occurrence: None)
  Receive Date: 20100503
  Receipt Date: 20100426
  Transmission Date: 20101027
  Serious: No
  Sender: FDA-Public Use
  Company Number: 010392

PATIENT
  Sex: Female
  Weight: 112.4921 kg

DRUGS (8)
  1. KEPPRA [Suspect]
     Indication: EPILEPSY
     Dosage: 500 MG BID, 500 MG QD, 500 MG BID
     Dates: end: 20100301
  2. KEPPRA [Suspect]
     Indication: EPILEPSY
     Dosage: 500 MG BID, 500 MG QD, 500 MG BID
     Dates: start: 20100301
  3. KEPPRA [Suspect]
     Indication: EPILEPSY
     Dosage: 500 MG BID, 500 MG QD, 500 MG BID
     Dates: start: 20100426
  4. TOPIRAMATE [Concomitant]
  5. AMBIEN [Concomitant]
  6. BIOTIN [Concomitant]
  7. PRENATAL VITAMINS [Concomitant]
  8. ALLSAN MULTIVITAMIN UND MINERAL [Concomitant]

REACTIONS (9)
  - ALBUMIN URINE PRESENT [None]
  - CONVULSION [None]
  - DIZZINESS [None]
  - DRUG EXPOSURE DURING PREGNANCY [None]
  - HEADACHE [None]
  - NAUSEA [None]
  - OEDEMA [None]
  - PREGNANCY [None]
  - VOMITING [None]
